FAERS Safety Report 24329676 (Version 3)
Quarter: 2025Q2

REPORT INFORMATION
  Report Type: Spontaneous
  Country: US (occurrence: US)
  Receive Date: 20240917
  Receipt Date: 20250618
  Transmission Date: 20250717
  Serious: No
  Sender: SANOFI AVENTIS
  Company Number: US-SA-2024SA267401

PATIENT
  Sex: Female
  Weight: 132.7 kg

DRUGS (1)
  1. FABRAZYME [Suspect]
     Active Substance: AGALSIDASE BETA
     Indication: Fabry^s disease
     Dosage: 90 MG, QOW
     Route: 042
     Dates: start: 201708

REACTIONS (3)
  - Weight increased [Recovered/Resolved]
  - Myalgia [Unknown]
  - Arthralgia [Unknown]
